FAERS Safety Report 13815552 (Version 1)
Quarter: 2017Q3

REPORT INFORMATION
  Report Type: Spontaneous
  Country: GB (occurrence: GB)
  Receive Date: 20170731
  Receipt Date: 20170731
  Transmission Date: 20171127
  Serious: Yes (Hospitalization)
  Sender: FDA-Public Use
  Company Number: GB-PFIZER INC-1709671

PATIENT
  Age: 51 Year
  Sex: Male

DRUGS (7)
  1. FLUOROURACIL. [Suspect]
     Active Substance: FLUOROURACIL
     Indication: COLON CANCER METASTATIC
     Dosage: 800 MILLIGRAM DAILY, FREQ: 1 WEEK; INTERVAL: 2
     Route: 040
     Dates: start: 20121219
  2. TINZAPARIN [Concomitant]
     Active Substance: TINZAPARIN
     Indication: PRODUCT USED FOR UNKNOWN INDICATION
     Dosage: UNK
     Dates: start: 20130128
  3. CALCIUM FOLINATE [Suspect]
     Active Substance: LEUCOVORIN CALCIUM
     Indication: VITAMIN SUPPLEMENTATION
     Dosage: FREQ: 1 WEEK; INTERVAL: 2
     Route: 042
     Dates: start: 20121219
  4. TIVOZANIB [Suspect]
     Active Substance: TIVOZANIB
     Indication: COLON CANCER METASTATIC
     Dosage: 1.5 MILLIGRAM DAILY; 1.5 MG EVERY 21 DAYS WITH A WEEK OFF, FREQ: 1 DAY; INTERVAL: 21
     Route: 048
     Dates: start: 20121219
  5. FLUOROURACIL. [Suspect]
     Active Substance: FLUOROURACIL
     Indication: PRODUCT USED FOR UNKNOWN INDICATION
     Dosage: 4700 MILLIGRAM DAILY, FREQ: 1 WEEK; INTERVAL: 2
     Route: 042
     Dates: start: 20121219
  6. OXALIPLATIN. [Suspect]
     Active Substance: OXALIPLATIN
     Indication: COLON CANCER METASTATIC
     Dosage: 170 MILLIGRAM DAILY, FREQ: 1 WEEK; INTERVAL: 2
     Route: 042
     Dates: start: 20121219
  7. DEXAMETHASONE. [Concomitant]
     Active Substance: DEXAMETHASONE
     Indication: PRODUCT USED FOR UNKNOWN INDICATION
     Dosage: UNK

REACTIONS (4)
  - Dyspnoea [Recovering/Resolving]
  - Pyrexia [Not Recovered/Not Resolved]
  - Sinus tachycardia [Recovering/Resolving]
  - Sepsis [Not Recovered/Not Resolved]

NARRATIVE: CASE EVENT DATE: 20130407
